FAERS Safety Report 4723304-1 (Version None)
Quarter: 2005Q3

REPORT INFORMATION
  Report Type: 
  Country: None (occurrence: None)
  Receive Date: 20050725
  Receipt Date: 20050222
  Transmission Date: 20060218
  Serious: No
  Sender: FDA-Public Use
  Company Number: US-BRISTOL-MYERS SQUIBB COMPANY-12872040

PATIENT
  Age: 47 Year
  Sex: Female
  Weight: 57 kg

DRUGS (1)
  1. DOVONEX [Suspect]
     Indication: DERMATITIS
     Route: 061
     Dates: start: 20050201, end: 20050201

REACTIONS (2)
  - DRY SKIN [None]
  - PALLOR [None]
